FAERS Safety Report 19998336 (Version 1)
Quarter: 2021Q4

REPORT INFORMATION
  Report Type: Spontaneous
  Country: US (occurrence: US)
  Receive Date: 20211026
  Receipt Date: 20211026
  Transmission Date: 20220303
  Serious: Yes (Hospitalization)
  Sender: FDA-Public Use
  Company Number: US-SA-SAC20211025000083

PATIENT
  Sex: Female

DRUGS (1)
  1. AUBAGIO [Suspect]
     Active Substance: TERIFLUNOMIDE
     Indication: Multiple sclerosis
     Dosage: 1 DF, QD
     Route: 048
     Dates: start: 20171018

REACTIONS (6)
  - Fatigue [Not Recovered/Not Resolved]
  - Sinus disorder [Not Recovered/Not Resolved]
  - Bladder disorder [Not Recovered/Not Resolved]
  - Illness [Not Recovered/Not Resolved]
  - Secretion discharge [Unknown]
  - Nasopharyngitis [Unknown]
